FAERS Safety Report 12852856 (Version 1)
Quarter: 2016Q4

REPORT INFORMATION
  Report Type: Spontaneous
  Country: US (occurrence: US)
  Receive Date: 20161017
  Receipt Date: 20161017
  Transmission Date: 20170207
  Serious: No
  Sender: FDA-Public Use
  Company Number: US-JAZZ-2016-US-013912

PATIENT
  Sex: Female

DRUGS (31)
  1. PAXIL [Concomitant]
     Active Substance: PAROXETINE HYDROCHLORIDE
  2. SUMATRIPTAN. [Concomitant]
     Active Substance: SUMATRIPTAN
  3. DEXTROMETHORPHAN HBR [Concomitant]
     Active Substance: DEXTROMETHORPHAN HYDROBROMIDE
  4. PSEUDOEPHEDRINE HCL [Concomitant]
     Active Substance: PSEUDOEPHEDRINE HYDROCHLORIDE
  5. TYLENOL ARTHRITIS ER [Concomitant]
  6. MELATONIN CR [Concomitant]
  7. BUTRANS [Concomitant]
     Active Substance: BUPRENORPHINE
  8. ZYRTEC [Concomitant]
     Active Substance: CETIRIZINE HYDROCHLORIDE
  9. RITALIN LA [Concomitant]
     Active Substance: METHYLPHENIDATE HYDROCHLORIDE
  10. IBUPROFEN. [Concomitant]
     Active Substance: IBUPROFEN
  11. XYREM [Suspect]
     Active Substance: SODIUM OXYBATE
     Indication: CATAPLEXY
     Dosage: 4 G, BID
     Route: 048
     Dates: start: 201409, end: 201510
  12. TIZANIDINE HCL [Concomitant]
     Active Substance: TIZANIDINE HYDROCHLORIDE
  13. TOPAMAX [Concomitant]
     Active Substance: TOPIRAMATE
  14. AMOXICILLIN. [Concomitant]
     Active Substance: AMOXICILLIN
  15. METHYLPHENIDATE. [Concomitant]
     Active Substance: METHYLPHENIDATE
  16. CLARITIN [Concomitant]
     Active Substance: LORATADINE
  17. DAYTIME COUGH + COLD [Concomitant]
  18. ADDERALL XR [Concomitant]
     Active Substance: AMPHETAMINE ASPARTATE\AMPHETAMINE SULFATE\DEXTROAMPHETAMINE SACCHARATE\DEXTROAMPHETAMINE SULFATE
  19. TIROSINT [Concomitant]
     Active Substance: LEVOTHYROXINE SODIUM
  20. DIAZEPAM. [Concomitant]
     Active Substance: DIAZEPAM
  21. TRAMADOL ER [Concomitant]
     Active Substance: TRAMADOL HYDROCHLORIDE
  22. XYREM [Suspect]
     Active Substance: SODIUM OXYBATE
     Dosage: 4.5 G, BID
     Route: 048
     Dates: start: 201510
  23. MODAFINIL. [Suspect]
     Active Substance: MODAFINIL
     Indication: PRODUCT USED FOR UNKNOWN INDICATION
     Dosage: UNK
     Dates: start: 20151223, end: 20160711
  24. CONCERTA [Concomitant]
     Active Substance: METHYLPHENIDATE HYDROCHLORIDE
  25. VERAMYST [Concomitant]
     Active Substance: FLUTICASONE FUROATE
  26. BACLOFEN. [Concomitant]
     Active Substance: BACLOFEN
  27. XYREM [Suspect]
     Active Substance: SODIUM OXYBATE
     Indication: NARCOLEPSY
     Dosage: 1.5 G, BID
     Route: 048
     Dates: start: 201408, end: 201409
  28. FLONASE ALLERGU RLF [Concomitant]
  29. VALIUM [Concomitant]
     Active Substance: DIAZEPAM
  30. MULTIVITAMINS [Concomitant]
     Active Substance: VITAMINS
  31. IRON [Concomitant]
     Active Substance: IRON

REACTIONS (1)
  - Malaise [Unknown]
